FAERS Safety Report 9157222 (Version 1)
Quarter: 2013Q1

REPORT INFORMATION
  Report Type: Spontaneous
  Country: US (occurrence: None)
  Receive Date: 20130308
  Receipt Date: 20130308
  Transmission Date: 20140127
  Serious: No
  Sender: FDA-Public Use
  Company Number: None

PATIENT
  Age: 81 Year
  Sex: Female
  Weight: 62.6 kg

DRUGS (2)
  1. PRISTIQ [Suspect]
     Indication: DECREASED APPETITE
     Dosage: 50 MG  1 PILL DAILY  ORAL?TOOK 1 TAB JAN 22  1 JAN 23
     Route: 048
  2. PRISTIQ [Suspect]
     Indication: DEPRESSION
     Dosage: 50 MG  1 PILL DAILY  ORAL?TOOK 1 TAB JAN 22  1 JAN 23
     Route: 048

REACTIONS (2)
  - Nausea [None]
  - Tremor [None]
